FAERS Safety Report 6509413-5 (Version None)
Quarter: 2009Q4

REPORT INFORMATION
  Report Type: 
  Country: None (occurrence: None)
  Receive Date: 20091210
  Receipt Date: 20090925
  Transmission Date: 20100525
  Serious: Yes (Death, Hospitalization)
  Sender: FDA-Public Use
  Company Number: CIP09001036

PATIENT
  Age: 79 Year
  Sex: Female

DRUGS (10)
  1. ACTONEL [Suspect]
     Indication: OSTEOPOROSIS
     Dosage: 5 MG DAILY, ORAL ; 5 MG DAILY, ORAL
     Route: 048
     Dates: start: 20010924, end: 20040504
  2. ACTONEL [Suspect]
     Indication: OSTEOPOROSIS
     Dosage: 5 MG DAILY, ORAL ; 5 MG DAILY, ORAL
     Route: 048
     Dates: start: 20050517
  3. FOSAMAX [Suspect]
     Indication: OSTEOPOROSIS
     Dosage: 70 MG, 1/WEEK, ORAL ; 70 MG ONCE WEEKLY, ORAL
     Route: 048
     Dates: end: 20010924
  4. FOSAMAX [Suspect]
     Indication: OSTEOPOROSIS
     Dosage: 70 MG, 1/WEEK, ORAL ; 70 MG ONCE WEEKLY, ORAL
     Route: 048
     Dates: end: 20060901
  5. LORTAB [Concomitant]
  6. SYNTHROID [Concomitant]
  7. ENALAPRIL MALEATE [Concomitant]
  8. CALCIUM (CALCIUM) [Concomitant]
  9. VITAMIN E /00110501/ (TOCOPHEROL) [Concomitant]
  10. AMBIEN [Concomitant]

REACTIONS (24)
  - ABSCESS JAW [None]
  - CELLULITIS [None]
  - DEATH [None]
  - DENTAL CARIES [None]
  - GINGIVAL OEDEMA [None]
  - GINGIVAL PAIN [None]
  - GINGIVITIS [None]
  - GLOSSODYNIA [None]
  - HYPERAESTHESIA [None]
  - JAW DISORDER [None]
  - NEURITIS [None]
  - OSTEITIS [None]
  - OSTEOMYELITIS [None]
  - OSTEONECROSIS [None]
  - OSTEOPENIA [None]
  - PAIN IN JAW [None]
  - PARAESTHESIA ORAL [None]
  - PERIODONTAL DISEASE [None]
  - PRIMARY SEQUESTRUM [None]
  - PURULENCE [None]
  - SALIVARY GLAND PAIN [None]
  - TONGUE ULCERATION [None]
  - TOOTH EXTRACTION [None]
  - TRAUMATIC ULCER [None]
